FAERS Safety Report 9665665 (Version 2)
Quarter: 2013Q4

REPORT INFORMATION
  Report Type: Report from Study
  Country: AU (occurrence: AU)
  Receive Date: 20131104
  Receipt Date: 20131121
  Transmission Date: 20140711
  Serious: Yes (Hospitalization)
  Sender: FDA-Public Use
  Company Number: PHHY2013AU123941

PATIENT
  Age: 32 Year
  Sex: Male

DRUGS (8)
  1. CLOZARIL [Suspect]
     Indication: SCHIZOPHRENIA
     Dosage: 600 MG, UNK
     Dates: start: 20051212, end: 20131015
  2. CLOZARIL [Suspect]
     Dosage: UNK UKN, UNK
     Dates: start: 20131104
  3. SYMBICORT [Concomitant]
     Indication: CHRONIC OBSTRUCTIVE PULMONARY DISEASE
     Dosage: 2 DF, UNK (2 PUFFS)
  4. SYMBICORT [Concomitant]
     Indication: ASTHMA
  5. ZUCLOPENTHIXOL [Concomitant]
     Dosage: 200 MG, BIW
     Route: 030
  6. ATORVASTATIN [Concomitant]
     Indication: BLOOD CHOLESTEROL INCREASED
     Dosage: 40 MG, DAILY
     Route: 048
  7. CALCIUM [Concomitant]
     Indication: MINERAL SUPPLEMENTATION
     Dosage: 600 MG, UNK
     Route: 048
  8. MELATONIN [Concomitant]
     Indication: SLEEP DISORDER
     Dosage: 2 MG, QD (2 MG, NOCTE)
     Route: 048

REACTIONS (3)
  - General physical health deterioration [Unknown]
  - Paranoia [Recovering/Resolving]
  - Drug level decreased [Unknown]
